FAERS Safety Report 5798529-7 (Version None)
Quarter: 2008Q3

REPORT INFORMATION
  Report Type: 
  Country: None (occurrence: None)
  Receive Date: 20080702
  Receipt Date: 20080625
  Transmission Date: 20090109
  Serious: Yes (Other)
  Sender: FDA-Public Use
  Company Number: JP-MERCK-0806USA08808

PATIENT

DRUGS (2)
  1. PRIMAXIN [Suspect]
     Indication: PYOTHORAX
     Route: 042
  2. CLINDAMYCIN PHOSPHATE [Concomitant]
     Route: 065

REACTIONS (3)
  - ALTERED STATE OF CONSCIOUSNESS [None]
  - MUSCULOSKELETAL STIFFNESS [None]
  - RHABDOMYOLYSIS [None]
